FAERS Safety Report 8925887 (Version 1)
Quarter: 2012Q4

REPORT INFORMATION
  Report Type: 
  Country: JO (occurrence: JO)
  Receive Date: 20121126
  Receipt Date: 20121126
  Transmission Date: 20130627
  Serious: Yes (Other)
  Sender: FDA-Public Use
  Company Number: PHHY2012JO106261

PATIENT
  Age: 78 Year
  Sex: Female

DRUGS (1)
  1. EXELON PATCH [Suspect]
     Dosage: 4.6 mg, QD
     Route: 062

REACTIONS (1)
  - Hemiplegia [Unknown]
